FAERS Safety Report 8068289-8 (Version None)
Quarter: 2012Q1

REPORT INFORMATION
  Report Type: 
  Country: None (occurrence: None)
  Receive Date: 20120124
  Receipt Date: 20111007
  Transmission Date: 20120608
  Serious: No
  Sender: FDA-Public Use
  Company Number: US-AMGEN-USASP2011051949

PATIENT
  Age: 73 Year
  Sex: Female

DRUGS (6)
  1. PROLIA [Suspect]
     Indication: OSTEOPOROSIS POSTMENOPAUSAL
     Dosage: 60 MG, Q6MO
     Dates: start: 20110301
  2. VITAMIN B-12 [Concomitant]
  3. FLONASE [Concomitant]
  4. VITAMIN D [Concomitant]
  5. MULTIVITAMIN                       /00097801/ [Concomitant]
  6. CALCIUM [Concomitant]

REACTIONS (1)
  - DERMATITIS [None]
